FAERS Safety Report 19617769 (Version 2)
Quarter: 2021Q3

REPORT INFORMATION
  Report Type: Spontaneous
  Country: IT (occurrence: IT)
  Receive Date: 20210727
  Receipt Date: 20210825
  Transmission Date: 20211014
  Serious: Yes (Life-Threatening)
  Sender: FDA-Public Use
  Company Number: IT-BAUSCH-BL-2021-025030

PATIENT
  Age: 33 Year
  Sex: Female

DRUGS (21)
  1. MAGNESIUM SULFATE. [Suspect]
     Active Substance: MAGNESIUM SULFATE
     Indication: BLOOD PRESSURE MEASUREMENT
     Dosage: SALINE SOLUTION 250 ML IN A 4?HOUR INFUSION PERIOD
     Route: 065
  2. LABETALOL [Suspect]
     Active Substance: LABETALOL\LABETALOL HYDROCHLORIDE
     Indication: HYPERTENSIVE CRISIS
     Dosage: OVER 2 MIN
     Route: 040
  3. NIFEDIPINE. [Suspect]
     Active Substance: NIFEDIPINE
     Route: 065
  4. METOCLOPRAMIDE. [Suspect]
     Active Substance: METOCLOPRAMIDE
     Indication: DYSPEPSIA
     Dosage: BEFORE HOSPITAL ADMISSION
     Route: 048
  5. MAGNESIUM SULFATE. [Suspect]
     Active Substance: MAGNESIUM SULFATE
     Indication: ARRHYTHMIA
     Dosage: SALINE SOLUTION 250 ML IN A 12?HOUR INFUSION PERIOD
     Route: 065
  6. INSULIN LISPRO [Suspect]
     Active Substance: INSULIN LISPRO
     Indication: GESTATIONAL DIABETES
     Dosage: 7.00 A.M.
     Route: 058
  7. INSULIN LISPRO [Suspect]
     Active Substance: INSULIN LISPRO
     Dosage: 12.00 A.M.
     Route: 058
  8. BISOPROLOL [Concomitant]
     Active Substance: BISOPROLOL
     Indication: HYPERTENSION
  9. LABETALOL [Suspect]
     Active Substance: LABETALOL\LABETALOL HYDROCHLORIDE
     Dosage: FOLLOWED BY A CONTINUOUS INFUSION
     Route: 040
  10. ALPHA METHYLDOPA [Suspect]
     Active Substance: METHYLDOPA
     Indication: HYPERTENSION
     Route: 065
  11. NIFEDIPINE. [Suspect]
     Active Substance: NIFEDIPINE
     Indication: BLOOD PRESSURE ABNORMAL
     Dosage: EXTENDED?RELEASE
     Route: 065
  12. INSULIN GLARGINE [Suspect]
     Active Substance: INSULIN GLARGINE
     Indication: GESTATIONAL DIABETES
     Dosage: AT 9:00 P.M.
     Route: 058
  13. URAPIDIL [Suspect]
     Active Substance: URAPIDIL
     Indication: BLOOD PRESSURE ABNORMAL
     Dosage: OVER 5 MINUTE
     Route: 040
  14. URAPIDIL [Suspect]
     Active Substance: URAPIDIL
     Dosage: FOLLOWED BY A CONTINUOUS INFUSION
     Route: 040
  15. INSULIN LISPRO [Suspect]
     Active Substance: INSULIN LISPRO
     Dosage: 6:00 P.M.
     Route: 058
  16. METOCLOPRAMIDE. [Suspect]
     Active Substance: METOCLOPRAMIDE
     Indication: NAUSEA
     Route: 048
  17. ATENOLOL. [Suspect]
     Active Substance: ATENOLOL
     Indication: PHAEOCHROMOCYTOMA
     Route: 065
  18. HYDROCHLOROTHIAZIDE. [Concomitant]
     Active Substance: HYDROCHLOROTHIAZIDE
     Indication: HYPERTENSION
  19. POTASSIUM CHLORIDE. [Suspect]
     Active Substance: POTASSIUM CHLORIDE
     Indication: ARRHYTHMIA
     Dosage: IN SALINE SOLUTION 250 ML IN 6?HOUR INFUSION PERIOD
     Route: 042
  20. DOXAZOSIN [Suspect]
     Active Substance: DOXAZOSIN MESYLATE
     Indication: PHAEOCHROMOCYTOMA
     Route: 065
  21. DOXAZOSIN [Suspect]
     Active Substance: DOXAZOSIN MESYLATE
     Route: 065

REACTIONS (2)
  - Maternal exposure during pregnancy [Unknown]
  - Phaeochromocytoma crisis [Recovered/Resolved]
